FAERS Safety Report 8748144 (Version 3)
Quarter: 2012Q4

REPORT INFORMATION
  Report Type: 
  Country: RU (occurrence: RU)
  Receive Date: 20120827
  Receipt Date: 20121002
  Transmission Date: 20130627
  Serious: Yes (Other)
  Sender: FDA-Public Use
  Company Number: CHPA2012RU018737

PATIENT
  Sex: Female

DRUGS (2)
  1. ACETAMINOPHEN\PHENIRAMINE\PHENYLEPHRINE HYDROCHLORIDE [Suspect]
     Indication: INFLUENZA
     Dosage: 2-3 sachets per day
     Route: 048
     Dates: start: 20120711, end: 20120712
  2. TILORONE [Concomitant]
     Dosage: Unk, Unk

REACTIONS (6)
  - Hypersensitivity [Recovered/Resolved]
  - Rash [Recovered/Resolved]
  - Erythema [Recovered/Resolved]
  - Pruritus [Recovered/Resolved]
  - Burning sensation [Recovered/Resolved]
  - Blister [Recovered/Resolved]
